FAERS Safety Report 5399482-0 (Version None)
Quarter: 2007Q3

REPORT INFORMATION
  Report Type: 
  Country: None (occurrence: None)
  Receive Date: 20070727
  Receipt Date: 20070710
  Transmission Date: 20080115
  Serious: Yes (Other)
  Sender: FDA-Public Use
  Company Number: JP-PFIZER INC-2007057101

PATIENT
  Age: 40 Year
  Sex: Male

DRUGS (6)
  1. ZYVOX [Suspect]
     Indication: STAPHYLOCOCCAL SEPSIS
     Dosage: DAILY DOSE:1200MG
     Route: 042
     Dates: start: 20070101, end: 20070101
  2. PRODIF [Concomitant]
     Dates: start: 20070501, end: 20070601
  3. ANTIBIOTICS [Concomitant]
  4. SIVELESTAT [Concomitant]
  5. TAZOCIN [Concomitant]
  6. AMIKACIN [Concomitant]

REACTIONS (2)
  - ANAEMIA HAEMOLYTIC AUTOIMMUNE [None]
  - PLATELET COUNT DECREASED [None]
